FAERS Safety Report 8557878-X (Version None)
Quarter: 2012Q3

REPORT INFORMATION
  Report Type: 
  Country: None (occurrence: None)
  Receive Date: 20120801
  Receipt Date: 20110505
  Transmission Date: 20120928
  Serious: Yes (Other)
  Sender: FDA-Public Use
  Company Number: US-JNJFOC-20120711009

PATIENT
  Age: 69 Year
  Sex: Male

DRUGS (1)
  1. NICOTINE [Suspect]
     Indication: SMOKING CESSATION THERAPY
     Route: 002
     Dates: start: 20060101

REACTIONS (2)
  - NICOTINE DEPENDENCE [None]
  - INTENTIONAL DRUG MISUSE [None]
